FAERS Safety Report 20146944 (Version 1)
Quarter: 2021Q4

REPORT INFORMATION
  Report Type: Spontaneous
  Country: None (occurrence: US)
  Receive Date: 20211203
  Receipt Date: 20211203
  Transmission Date: 20220303
  Serious: Yes (Other)
  Sender: FDA-Public Use
  Company Number: US-AnazaoHealth Corporation-2122673

PATIENT
  Age: 55 Year
  Sex: Female

DRUGS (2)
  1. ESTRADIOL [Suspect]
     Active Substance: ESTRADIOL
     Indication: Menopause
     Route: 058
     Dates: start: 20190821
  2. TESTOSTERONE [Concomitant]
     Active Substance: TESTOSTERONE
     Route: 058
     Dates: start: 20180324

REACTIONS (1)
  - Breast cancer [Unknown]
